FAERS Safety Report 9064259 (Version 2)
Quarter: 2013Q1

REPORT INFORMATION
  Report Type: Spontaneous
  Country: DE (occurrence: ES)
  Receive Date: 20130213
  Receipt Date: 20130321
  Transmission Date: 20140127
  Serious: Yes (Hospitalization, Other)
  Sender: FDA-Public Use
  Company Number: ES-FRI-1000042604

PATIENT
  Age: 78 Year
  Sex: Male
  Weight: 67 kg

DRUGS (4)
  1. ROFLUMILAST [Suspect]
     Indication: CHRONIC OBSTRUCTIVE PULMONARY DISEASE
     Dosage: 500 MCG
     Route: 048
     Dates: start: 20121025, end: 20121030
  2. ROFLUMILAST [Suspect]
     Dosage: 250 MCG
     Route: 048
  3. FLUMIL [Concomitant]
     Dosage: 1 DF
     Route: 048
  4. SERETIDE [Concomitant]
     Dosage: 4 DF
     Route: 055

REACTIONS (4)
  - Decreased appetite [Recovered/Resolved]
  - Insomnia [Recovered/Resolved]
  - Fatigue [Recovered/Resolved]
  - Medication error [Unknown]
